FAERS Safety Report 20647630 (Version 2)
Quarter: 2022Q2

REPORT INFORMATION
  Report Type: Report from Study
  Country: IT (occurrence: IT)
  Receive Date: 20220329
  Receipt Date: 20220504
  Transmission Date: 20220721
  Serious: No
  Sender: FDA-Public Use
  Company Number: IT-UCBSA-2022016781

PATIENT
  Sex: Male

DRUGS (4)
  1. NEUPRO [Suspect]
     Active Substance: ROTIGOTINE
     Indication: Product used for unknown indication
     Dosage: 8 MILLIGRAM, UNK
     Route: 062
     Dates: end: 20220311
  2. BENSERAZIDE HYDROCHLORIDE\LEVODOPA [Concomitant]
     Active Substance: BENSERAZIDE HYDROCHLORIDE\LEVODOPA
     Indication: Product used for unknown indication
     Dosage: 0.5 DOSAGE FORM, 4X/DAY (QID)
  3. SELEGILINE HYDROCHLORIDE [Concomitant]
     Active Substance: SELEGILINE HYDROCHLORIDE
     Indication: Product used for unknown indication
     Dosage: UNK
  4. CELEBREX [Concomitant]
     Active Substance: CELECOXIB
     Indication: Product used for unknown indication
     Dosage: UNK

REACTIONS (4)
  - Drug ineffective [Unknown]
  - Hypokinesia [Unknown]
  - Device malfunction [Unknown]
  - Drug ineffective [Unknown]
